FAERS Safety Report 7049200-5 (Version None)
Quarter: 2010Q4

REPORT INFORMATION
  Report Type: 
  Country: None (occurrence: None)
  Receive Date: 20101012
  Receipt Date: 20101001
  Transmission Date: 20110411
  Serious: Yes (Life-Threatening, Hospitalization, Other)
  Sender: FDA-Public Use
  Company Number: 018821

PATIENT
  Sex: Female
  Weight: 88 kg

DRUGS (16)
  1. KEPPRA [Suspect]
     Indication: EPILEPSY
     Dosage: (3000MG) ; (1750 MG BID ORAL) (4000 MG)
     Route: 048
     Dates: start: 20091231, end: 20100104
  2. KEPPRA [Suspect]
     Indication: EPILEPSY
     Dosage: (3000MG) ; (1750 MG BID ORAL) (4000 MG)
     Route: 048
     Dates: start: 20100105, end: 20100106
  3. VIMPAT [Suspect]
     Indication: EPILEPSY
     Dosage: (200 MG BID) ; (200 MG BID INTRAVENOUS (NOT OTHERWISE SPECIFIED))
     Route: 042
     Dates: start: 20091229, end: 20091231
  4. VIMPAT [Suspect]
     Indication: EPILEPSY
     Dosage: (200 MG BID) ; (200 MG BID INTRAVENOUS (NOT OTHERWISE SPECIFIED))
     Route: 042
     Dates: start: 20100101, end: 20100102
  5. VIMPAT [Suspect]
     Indication: EPILEPSY
     Dosage: (200 MG BID) ; (200 MG BID INTRAVENOUS (NOT OTHERWISE SPECIFIED))
     Route: 042
     Dates: start: 20100102, end: 20100106
  6. ASPIRIN [Concomitant]
  7. AMLODIPINE [Concomitant]
  8. APROVEL [Concomitant]
  9. DISALUNIL [Concomitant]
  10. CARVEDILOL [Concomitant]
  11. TORSEMIDE [Concomitant]
  12. TOLPERISONE [Concomitant]
  13. DURAGESIC-100 [Concomitant]
  14. TAVOR /00273201/ [Concomitant]
  15. NOVORAPID [Concomitant]
  16. LEVEMIR [Concomitant]

REACTIONS (8)
  - AFFECTIVE DISORDER [None]
  - DEPRESSION [None]
  - DISTURBANCE IN ATTENTION [None]
  - GENERAL PHYSICAL HEALTH DETERIORATION [None]
  - OVERDOSE [None]
  - PERSONALITY CHANGE [None]
  - STATUS EPILEPTICUS [None]
  - SUICIDAL IDEATION [None]
